FAERS Safety Report 11397500 (Version 2)
Quarter: 2015Q3

REPORT INFORMATION
  Report Type: Spontaneous
  Country: VN (occurrence: VN)
  Receive Date: 20150819
  Receipt Date: 20150827
  Transmission Date: 20151125
  Serious: Yes (Other)
  Sender: FDA-Public Use
  Company Number: VN-PFIZER INC-2015272697

PATIENT
  Age: 62 Year
  Sex: Female

DRUGS (2)
  1. UNASYN [Suspect]
     Active Substance: AMPICILLIN SODIUM\SULBACTAM SODIUM
     Indication: INFECTION PROPHYLAXIS
     Dosage: 2 VIALS, DAILY
     Route: 042
     Dates: start: 20150804, end: 20150809
  2. SODIUM CHLORIDE. [Concomitant]
     Active Substance: SODIUM CHLORIDE
     Dosage: UNK

REACTIONS (4)
  - Decreased appetite [Recovered/Resolved]
  - Sense of oppression [Recovered/Resolved]
  - Pruritus [Recovered/Resolved]
  - Hypotension [Recovered/Resolved]

NARRATIVE: CASE EVENT DATE: 20150804
